FAERS Safety Report 9745812 (Version 1)
Quarter: 2013Q4

REPORT INFORMATION
  Report Type: Spontaneous
  Country: CA (occurrence: CA)
  Receive Date: 20131211
  Receipt Date: 20131211
  Transmission Date: 20140711
  Serious: Yes (Other)
  Sender: FDA-Public Use
  Company Number: CA-B.I. PHARMACEUTICALS,INC./RIDGEFIELD-2013-BI-40837CN

PATIENT
  Age: 61 Year
  Sex: Male
  Weight: 117 kg

DRUGS (5)
  1. PRADAXA [Suspect]
     Dosage: 220 MG
     Route: 065
  2. ENALAPRIL [Concomitant]
  3. GLIMEPIRIDE [Concomitant]
  4. HYDROCHLOROTHIAZIDE [Concomitant]
  5. METOPROLOL [Concomitant]

REACTIONS (3)
  - Abdominal discomfort [Recovered/Resolved]
  - Abdominal pain upper [Recovered/Resolved]
  - Aphagia [Recovered/Resolved]
